FAERS Safety Report 19926728 (Version 2)
Quarter: 2021Q4

REPORT INFORMATION
  Report Type: Spontaneous
  Country: BR (occurrence: BR)
  Receive Date: 20211006
  Receipt Date: 20211015
  Transmission Date: 20220303
  Serious: Yes (Death, Hospitalization)
  Sender: FDA-Public Use
  Company Number: BR-BOEHRINGERINGELHEIM-2021-BI-130819

PATIENT
  Age: 68 Year
  Sex: Female
  Weight: 55 kg

DRUGS (8)
  1. OFEV [Suspect]
     Active Substance: NINTEDANIB
     Indication: Pulmonary fibrosis
     Route: 048
     Dates: start: 20210904, end: 20211001
  2. OFEV [Suspect]
     Active Substance: NINTEDANIB
     Route: 048
     Dates: start: 20211003
  3. METFORMIN HYDROCHLORIDE [Concomitant]
     Active Substance: METFORMIN HYDROCHLORIDE
     Indication: Diabetes mellitus
     Dosage: 2 TABLETS AT NIGHT
     Route: 048
     Dates: start: 2014
  4. LANTUS [Concomitant]
     Active Substance: INSULIN GLARGINE
     Indication: Diabetes mellitus
     Dosage: 10 UNITS ONCE A DAY AT MORNING
  5. ATORVASTATIN [Concomitant]
     Active Substance: ATORVASTATIN
     Indication: Prophylaxis
     Dosage: 1 TABLET PER DAY
     Route: 048
     Dates: start: 202107
  6. ASPIRIN [Concomitant]
     Active Substance: ASPIRIN
     Indication: Prophylaxis
     Dosage: 1 TABLET ONCE A DAY
     Route: 048
     Dates: start: 202107
  7. SYNTHROID [Concomitant]
     Active Substance: LEVOTHYROXINE SODIUM
     Indication: Thyroid disorder
     Dosage: 1 TABLET AT THE MORNING
     Route: 048
  8. OSCAL [CALCITRIOL] [Concomitant]
     Indication: Supplementation therapy
     Dosage: 1 TABLET AT LUNCH
     Route: 048

REACTIONS (11)
  - Gastrointestinal haemorrhage [Fatal]
  - Intestinal haemorrhage [Recovered/Resolved]
  - Pneumonia [Unknown]
  - Blood pressure decreased [Unknown]
  - Headache [Unknown]
  - Fatigue [Unknown]
  - Decreased appetite [Unknown]
  - Weight decreased [Unknown]
  - Fatigue [Unknown]
  - Dizziness [Unknown]
  - Oxygen saturation decreased [Unknown]

NARRATIVE: CASE EVENT DATE: 20210930
